FAERS Safety Report 12793851 (Version 1)
Quarter: 2016Q3

REPORT INFORMATION
  Report Type: Spontaneous
  Country: US (occurrence: US)
  Receive Date: 20160929
  Receipt Date: 20160929
  Transmission Date: 20161109
  Serious: No
  Sender: FDA-Public Use
  Company Number: US-JAZZ-2016-US-011934

PATIENT
  Sex: Female

DRUGS (62)
  1. ALBUTEROL SULFATE. [Concomitant]
     Active Substance: ALBUTEROL SULFATE
  2. FOCALIN [Concomitant]
     Active Substance: DEXMETHYLPHENIDATE HYDROCHLORIDE
  3. GLUCOSAMINE/MSM COMPLEX [Concomitant]
  4. RESTASIS [Concomitant]
     Active Substance: CYCLOSPORINE
  5. IMODIUM [Concomitant]
     Active Substance: LOPERAMIDE HYDROCHLORIDE
  6. CYCLOBENZAPRINE [Concomitant]
     Active Substance: CYCLOBENZAPRINE
  7. DEXTROAMPHETAMINE. [Concomitant]
     Active Substance: DEXTROAMPHETAMINE
  8. MULTIPLE VITAMINS [Concomitant]
     Active Substance: VITAMINS
  9. PRILOSEC [Concomitant]
     Active Substance: OMEPRAZOLE MAGNESIUM
  10. XYREM [Suspect]
     Active Substance: SODIUM OXYBATE
     Dosage: DOSE ADJUSTMENTS
     Route: 048
     Dates: start: 201302, end: 201603
  11. SULFASALAZINE. [Concomitant]
     Active Substance: SULFASALAZINE
  12. XYREM [Suspect]
     Active Substance: SODIUM OXYBATE
     Dosage: 4.5 G, BID
     Route: 048
     Dates: start: 201603
  13. METHYLCOBALAMIN. [Concomitant]
     Active Substance: METHYLCOBALAMIN
  14. L-METHYLFOLATE CALCIUM [Concomitant]
     Active Substance: LEVOMEFOLATE CALCIUM
  15. AZELASTINE [Concomitant]
     Active Substance: AZELASTINE
  16. MAXALT [Concomitant]
     Active Substance: RIZATRIPTAN BENZOATE
  17. ASTEPRO [Concomitant]
     Active Substance: AZELASTINE HYDROCHLORIDE
  18. GOLYTELY [Concomitant]
     Active Substance: POLYETHYLENE GLYCOL 3350\POTASSIUM CHLORIDE\SODIUM BICARBONATE\SODIUM CHLORIDE\SODIUM SULFATE ANHYDROUS
  19. IMITREX [Concomitant]
     Active Substance: SUMATRIPTAN SUCCINATE
  20. XYREM [Suspect]
     Active Substance: SODIUM OXYBATE
     Indication: CATAPLEXY
     Dosage: 2.25 G, BID
     Route: 048
     Dates: start: 201301, end: 201302
  21. GABAPENTIN. [Concomitant]
     Active Substance: GABAPENTIN
  22. EPINEPHRINE. [Concomitant]
     Active Substance: EPINEPHRINE
  23. METROCREAM [Concomitant]
     Active Substance: METRONIDAZOLE
  24. OMEGA 3 FISH OIL [Concomitant]
     Active Substance: FISH OIL\OMEGA-3 FATTY ACIDS
  25. CRANBERRY. [Concomitant]
     Active Substance: CRANBERRY
  26. BECLOMETHASONE [Concomitant]
     Active Substance: BECLOMETHASONE
  27. GLUCOSAMINE AND CHONDROITIN [Concomitant]
     Active Substance: CHONDROITIN SULFATE (BOVINE)\GLUCOSAMINE HYDROCHLORIDE
  28. HYOSCYAMINE. [Concomitant]
     Active Substance: HYOSCYAMINE
  29. GUAIFENESIN. [Concomitant]
     Active Substance: GUAIFENESIN
  30. FLAXSEED [Concomitant]
     Active Substance: FLAX SEED
  31. NORTRIPTYLINE HCL [Concomitant]
     Active Substance: NORTRIPTYLINE HYDROCHLORIDE
  32. QNASL [Concomitant]
     Active Substance: BECLOMETHASONE DIPROPIONATE
  33. ADVAIR HFA [Concomitant]
     Active Substance: FLUTICASONE PROPIONATE\SALMETEROL XINAFOATE
  34. STRATTERA [Concomitant]
     Active Substance: ATOMOXETINE HYDROCHLORIDE
  35. NEILMED SINUS RINSE [Concomitant]
     Active Substance: SODIUM BICARBONATE\SODIUM CHLORIDE
  36. QUERCETIN [Concomitant]
     Active Substance: QUERCETIN
  37. XYREM [Suspect]
     Active Substance: SODIUM OXYBATE
     Indication: NARCOLEPSY
     Dosage: 2.25 G, BID
     Route: 048
     Dates: start: 200702, end: 2007
  38. AZULFIDINE [Concomitant]
     Active Substance: SULFASALAZINE
  39. PROTONIX [Concomitant]
     Active Substance: PANTOPRAZOLE SODIUM
  40. BUPROPION HCL [Concomitant]
     Active Substance: BUPROPION HYDROCHLORIDE
  41. NYSTATIN/TRIAMCINOLONE [Concomitant]
     Active Substance: NYSTATIN\TRIAMCINOLONE
  42. OMNARIS [Concomitant]
     Active Substance: CICLESONIDE
  43. SKELAXIN [Concomitant]
     Active Substance: METAXALONE
  44. SYMBICORT [Concomitant]
     Active Substance: BUDESONIDE\FORMOTEROL FUMARATE DIHYDRATE
  45. TURMERIC [Concomitant]
     Active Substance: TURMERIC
  46. AYGESTIN [Concomitant]
     Active Substance: NORETHINDRONE ACETATE
  47. VITAMIN B12 [Concomitant]
     Active Substance: CYANOCOBALAMIN
  48. DEXMETHYLPHENIDATE HYDROCHLORIDE. [Concomitant]
     Active Substance: DEXMETHYLPHENIDATE HYDROCHLORIDE
  49. ASTELIN [Concomitant]
     Active Substance: AZELASTINE HYDROCHLORIDE
  50. ALLEGRA [Concomitant]
     Active Substance: FEXOFENADINE HYDROCHLORIDE
  51. DEXEDRINE [Concomitant]
     Active Substance: DEXTROAMPHETAMINE SULFATE
  52. FLEXERIL [Concomitant]
     Active Substance: CYCLOBENZAPRINE HYDROCHLORIDE
  53. FOLIC ACID. [Concomitant]
     Active Substance: FOLIC ACID
  54. LEVBID [Concomitant]
     Active Substance: HYOSCYAMINE SULFATE
  55. PROBIOTIC ACIDOPHILUS [Concomitant]
     Active Substance: LACTOBACILLUS ACIDOPHILUS
  56. XYZAL [Concomitant]
     Active Substance: LEVOCETIRIZINE DIHYDROCHLORIDE
  57. ZANTAC [Concomitant]
     Active Substance: RANITIDINE HYDROCHLORIDE
  58. PROVIGIL [Concomitant]
     Active Substance: MODAFINIL
  59. TOPAMAX [Concomitant]
     Active Substance: TOPIRAMATE
  60. METROGEL [Concomitant]
     Active Substance: METRONIDAZOLE
  61. MESALAMINE. [Concomitant]
     Active Substance: MESALAMINE
  62. KETOCONAZOLE. [Concomitant]
     Active Substance: KETOCONAZOLE

REACTIONS (3)
  - Upper-airway cough syndrome [Not Recovered/Not Resolved]
  - Seborrhoeic dermatitis [Unknown]
  - Secretion discharge [Not Recovered/Not Resolved]
